FAERS Safety Report 7051468-6 (Version None)
Quarter: 2010Q4

REPORT INFORMATION
  Report Type: 
  Country: None (occurrence: None)
  Receive Date: 20101019
  Receipt Date: 20101008
  Transmission Date: 20110411
  Serious: Yes (Hospitalization, Congenital Anomaly)
  Sender: FDA-Public Use
  Company Number: A0887199A

PATIENT
  Sex: Female
  Weight: 3.1 kg

DRUGS (3)
  1. PAXIL [Suspect]
     Indication: PRODUCT USED FOR UNKNOWN INDICATION
     Dosage: 20MG PER DAY
     Dates: start: 19930918
  2. ARTANE [Concomitant]
  3. TRIAVIL [Concomitant]

REACTIONS (5)
  - DRUG EXPOSURE DURING PREGNANCY [None]
  - DYSMORPHISM [None]
  - HYPOTONIA [None]
  - PULMONARY HYPERTENSION [None]
  - VENTRICULAR SEPTAL DEFECT [None]
